FAERS Safety Report 8266037 (Version 10)
Quarter: 2016Q2

REPORT INFORMATION
  Report Type: Spontaneous
  Country: JP (occurrence: JP)
  Receive Date: 20111129
  Receipt Date: 20160613
  Transmission Date: 20160815
  Serious: No
  Sender: FDA-Public Use
  Company Number: JP-JNJFOC-20110902684

PATIENT
  Age: 30 Year
  Sex: Female
  Weight: 40 kg

DRUGS (9)
  1. DUROTEP MT [Suspect]
     Active Substance: FENTANYL
     Indication: PAIN
     Route: 062
     Dates: start: 2005, end: 20111027
  2. DUROTEP MT [Suspect]
     Active Substance: FENTANYL
     Indication: PROCEDURAL PAIN
     Route: 062
     Dates: start: 2005, end: 20111027
  3. NITROUS OXIDE. [Suspect]
     Active Substance: NITROUS OXIDE
     Indication: GENERAL ANAESTHESIA
     Route: 065
  4. FENTANYL CITRATE. [Suspect]
     Active Substance: FENTANYL CITRATE
     Indication: GENERAL ANAESTHESIA
     Route: 042
     Dates: start: 20111025, end: 20111025
  5. SEVOFLURANE. [Suspect]
     Active Substance: SEVOFLURANE
     Indication: GENERAL ANAESTHESIA
     Route: 065
  6. ULTIVA [Suspect]
     Active Substance: REMIFENTANIL HYDROCHLORIDE
     Indication: GENERAL ANAESTHESIA
     Route: 042
     Dates: start: 20111025, end: 20111025
  7. METOCLOPRAMIDE. [Suspect]
     Active Substance: METOCLOPRAMIDE
     Indication: UTERINE CONTRACTIONS DURING PREGNANCY
     Route: 048
  8. MORPHINE HYDROCHLORIDE [Suspect]
     Active Substance: MORPHINE HYDROCHLORIDE
     Indication: UTERINE CONTRACTIONS DURING PREGNANCY
     Route: 065
     Dates: start: 2005
  9. ROCURONIUM BROMIDE. [Suspect]
     Active Substance: ROCURONIUM BROMIDE
     Indication: HYPOTONIA
     Route: 065

REACTIONS (4)
  - Drug prescribing error [Unknown]
  - Exposure during pregnancy [Recovered/Resolved]
  - Exposure during pregnancy [Recovered/Resolved]
  - Off label use [Unknown]

NARRATIVE: CASE EVENT DATE: 20111025
